FAERS Safety Report 11483462 (Version 1)
Quarter: 2015Q3

REPORT INFORMATION
  Report Type: Spontaneous
  Country: US (occurrence: US)
  Receive Date: 20150903
  Receipt Date: 20150903
  Transmission Date: 20151125
  Serious: Yes (Other)
  Sender: FDA-Public Use
  Company Number: US-ELI_LILLY_AND_COMPANY-US201207000900

PATIENT
  Age: 60 Year
  Sex: Male

DRUGS (2)
  1. CYMBALTA [Suspect]
     Active Substance: DULOXETINE HYDROCHLORIDE
     Indication: PAIN
     Dosage: 60 MG, UNK
  2. DURAGESIC [Concomitant]
     Active Substance: FENTANYL

REACTIONS (2)
  - Serotonin syndrome [Unknown]
  - Social avoidant behaviour [Unknown]
